FAERS Safety Report 5014514-7 (Version None)
Quarter: 2006Q2

REPORT INFORMATION
  Report Type: 
  Country: None (occurrence: None)
  Receive Date: 20060531
  Receipt Date: 20060516
  Transmission Date: 20061013
  Serious: Yes (Hospitalization)
  Sender: FDA-Public Use
  Company Number: US-AMGEN-US179737

PATIENT
  Sex: Male

DRUGS (7)
  1. ARANESP [Suspect]
     Indication: ANAEMIA
     Dates: start: 20060329, end: 20060329
  2. NITROGLYCERIN [Concomitant]
  3. DIGOXIN [Concomitant]
  4. PLAVIX [Concomitant]
  5. ASPIRIN [Concomitant]
  6. METOPROLOL [Concomitant]
  7. PROTONIX [Concomitant]

REACTIONS (5)
  - DEMENTIA [None]
  - DYSPNOEA [None]
  - FATIGUE [None]
  - HAEMORRHAGE [None]
  - PERICARDIAL EFFUSION [None]
